FAERS Safety Report 8442970 (Version 3)
Quarter: 2014Q1

REPORT INFORMATION
  Report Type: Spontaneous
  Country: US (occurrence: US)
  Receive Date: 20120306
  Receipt Date: 20140320
  Transmission Date: 20141002
  Serious: Yes (Hospitalization, Other)
  Sender: FDA-Public Use
  Company Number: US-BAYER-2012-019561

PATIENT
  Age: 32 Year
  Sex: Female
  Weight: 54.42 kg

DRUGS (6)
  1. YAZ [Suspect]
     Dosage: UNK
     Dates: start: 1998, end: 2011
  2. YASMIN [Suspect]
     Dosage: UNK
     Dates: start: 1998, end: 2011
  3. OCELLA [Suspect]
     Dosage: UNK
     Dates: start: 1998, end: 2011
  4. PREVACID [Concomitant]
  5. ALLEGRA [Concomitant]
  6. AMBIEN [Concomitant]

REACTIONS (3)
  - Arrhythmia [None]
  - Cholecystectomy [None]
  - Cholecystitis chronic [None]
